FAERS Safety Report 8348575-4 (Version None)
Quarter: 2012Q2

REPORT INFORMATION
  Report Type: 
  Country: None (occurrence: None)
  Receive Date: 20120510
  Receipt Date: 20120505
  Transmission Date: 20120825
  Serious: Yes (Hospitalization)
  Sender: FDA-Public Use
  Company Number: US-AMGEN-USASP2012028602

PATIENT
  Sex: Male

DRUGS (2)
  1. ANTINEOPLASTIC AGENTS [Concomitant]
     Indication: B-CELL LYMPHOMA
  2. NEULASTA [Suspect]
     Indication: NEUTROPENIA
     Dosage: 6 MG, UNK
     Dates: start: 20120504

REACTIONS (1)
  - ACUTE RESPIRATORY DISTRESS SYNDROME [None]
